FAERS Safety Report 25297384 (Version 1)
Quarter: 2025Q2

REPORT INFORMATION
  Report Type: Spontaneous
  Country: US (occurrence: US)
  Receive Date: 20250511
  Receipt Date: 20250511
  Transmission Date: 20250717
  Serious: No
  Sender: SANOFI AVENTIS
  Company Number: US-SA-2025SA134346

PATIENT
  Sex: Female
  Weight: 111.36 kg

DRUGS (1)
  1. DUPIXENT [Suspect]
     Active Substance: DUPILUMAB
     Indication: Dermatitis atopic
     Dosage: 300MG, EVERY OTHER WEEK
     Route: 058
     Dates: start: 2020

REACTIONS (1)
  - Pharyngitis streptococcal [Unknown]
